FAERS Safety Report 5278792-1 (Version None)
Quarter: 2007Q1

REPORT INFORMATION
  Report Type: 
  Country: None (occurrence: None)
  Receive Date: 20061208
  Receipt Date: 20060523
  Transmission Date: 20070707
  Serious: Yes (Other)
  Sender: FDA-Public Use
  Company Number: USA-2005-0021471

PATIENT
  Age: 42 Year
  Sex: Male

DRUGS (24)
  1. OXYCONTIN [Suspect]
     Indication: PAIN
     Dosage: SEE TEXT
  2. DOCUSATE [Concomitant]
  3. VICODIN [Concomitant]
  4. FLEXERIL [Concomitant]
  5. ROFECOXIB [Concomitant]
  6. ARTIFICIAL TEARS [Concomitant]
  7. AMITRIPTYLINE HYDROCHLORIDE [Concomitant]
  8. CLOTRIMAZOLE [Concomitant]
  9. CYCLOBENZAPRINE HCL [Concomitant]
  10. GABAPENTIN [Concomitant]
  11. IBUPROFEN [Concomitant]
  12. IPRATROPIUM BROMIDE [Concomitant]
  13. OMEPRAZOLE [Concomitant]
  14. SERTRALINE [Concomitant]
  15. SIMVASTATIN [Concomitant]
  16. SODIUM CHLORIDE [Concomitant]
  17. TRAMADOL HCL [Concomitant]
  18. ALTACE [Concomitant]
  19. MOBIC [Concomitant]
  20. VITAMIN B-12 [Concomitant]
  21. BEXTRA [Concomitant]
  22. ARTHROTEC [Concomitant]
  23. TIZANIDINE HCL [Concomitant]
  24. ALLEGRA [Concomitant]

REACTIONS (25)
  - AGGRESSION [None]
  - ANXIETY [None]
  - ARTHRALGIA [None]
  - BACK PAIN [None]
  - DELUSIONAL DISORDER, UNSPECIFIED TYPE [None]
  - DEPRESSION [None]
  - DRUG DEPENDENCE [None]
  - DRUG DOSE OMISSION [None]
  - DRUG WITHDRAWAL SYNDROME [None]
  - EMOTIONAL DISTRESS [None]
  - EUPHORIC MOOD [None]
  - HEADACHE [None]
  - HYPOAESTHESIA [None]
  - INSOMNIA [None]
  - IRRITABILITY [None]
  - JOINT LOCK [None]
  - JOINT RANGE OF MOTION DECREASED [None]
  - JOINT SWELLING [None]
  - MUSCLE SPASMS [None]
  - OBSESSIVE-COMPULSIVE DISORDER [None]
  - PAIN [None]
  - PARANOIA [None]
  - SWELLING [None]
  - WEIGHT DECREASED [None]
  - WEIGHT INCREASED [None]
